FAERS Safety Report 6165748-X (Version None)
Quarter: 2009Q2

REPORT INFORMATION
  Report Type: 
  Country: None (occurrence: None)
  Receive Date: 20090422
  Receipt Date: 20090406
  Transmission Date: 20091009
  Serious: Yes (Other)
  Sender: FDA-Public Use
  Company Number: 2009S1006242

PATIENT
  Age: 32 Year
  Sex: Female

DRUGS (3)
  1. CLARITHROMYCIN [Suspect]
     Indication: TONSILLITIS
     Dosage: 500 MG;ORAL
     Route: 048
     Dates: start: 20090212
  2. CO-CODAMOL (PANADEINE CO) [Concomitant]
  3. DICLOFENAC (DICLOFENAC) [Concomitant]

REACTIONS (3)
  - CHROMATURIA [None]
  - LIVER FUNCTION TEST ABNORMAL [None]
  - OEDEMA PERIPHERAL [None]
